FAERS Safety Report 20843287 (Version 4)
Quarter: 2022Q4

REPORT INFORMATION
  Report Type: Report from Study
  Country: US (occurrence: US)
  Receive Date: 20220518
  Receipt Date: 20221011
  Transmission Date: 20230112
  Serious: Yes (Other)
  Sender: FDA-Public Use
  Company Number: US-NOVARTISTESTPH-NVSC2022US112335

PATIENT
  Age: 36 Year
  Sex: Female

DRUGS (1)
  1. KESIMPTA [Suspect]
     Active Substance: OFATUMUMAB
     Indication: Relapsing-remitting multiple sclerosis
     Dosage: 20 MG, QMO
     Route: 058
     Dates: start: 20220213

REACTIONS (6)
  - Multiple sclerosis relapse [Recovering/Resolving]
  - Balance disorder [Recovering/Resolving]
  - Insomnia [Recovering/Resolving]
  - Cognitive disorder [Recovering/Resolving]
  - Nasopharyngitis [Recovering/Resolving]
  - Mobility decreased [Not Recovered/Not Resolved]

NARRATIVE: CASE EVENT DATE: 20220213
